FAERS Safety Report 15813350 (Version 4)
Quarter: 2019Q1

REPORT INFORMATION
  Report Type: Spontaneous
  Country: US (occurrence: US)
  Receive Date: 20190111
  Receipt Date: 20190201
  Transmission Date: 20190417
  Serious: Yes (Hospitalization, Other)
  Sender: FDA-Public Use
  Company Number: US-UNITED THERAPEUTICS-UNT-2019-000048

PATIENT
  Age: 47 Year
  Sex: Female
  Weight: 76.64 kg

DRUGS (2)
  1. REMODULIN [Suspect]
     Active Substance: TREPROSTINIL
     Dosage: 0.05 ?G/KG, CONTINUING
     Route: 058
  2. REMODULIN [Suspect]
     Active Substance: TREPROSTINIL
     Indication: PULMONARY ARTERIAL HYPERTENSION
     Dosage: 0.06 ?G/KG, CONTINUING
     Route: 058
     Dates: start: 20070601

REACTIONS (12)
  - Pain in extremity [Unknown]
  - Presyncope [Unknown]
  - Diarrhoea [Unknown]
  - Haemoptysis [Unknown]
  - Hypoglycaemia [Unknown]
  - Headache [Unknown]
  - Dyspnoea at rest [Unknown]
  - Therapy cessation [Unknown]
  - Dehydration [Unknown]
  - Vomiting [Unknown]
  - Nausea [Unknown]
  - Dyspnoea [Unknown]

NARRATIVE: CASE EVENT DATE: 20190102
